FAERS Safety Report 12169734 (Version 2)
Quarter: 2016Q2

REPORT INFORMATION
  Report Type: Spontaneous
  Country: US (occurrence: US)
  Receive Date: 20160310
  Receipt Date: 20160517
  Transmission Date: 20160815
  Serious: Yes (Hospitalization)
  Sender: FDA-Public Use
  Company Number: US-PERNIX THERAPEUTICS-2016PT000043

PATIENT

DRUGS (4)
  1. CYMBALTA [Concomitant]
     Active Substance: DULOXETINE HYDROCHLORIDE
     Indication: MAJOR DEPRESSION
     Dosage: 30 MG, EVERY MORNING
  2. SEROQUEL [Concomitant]
     Active Substance: QUETIAPINE FUMARATE
     Indication: MAJOR DEPRESSION
     Dosage: 50 MG, 1-2 AT BEDTIME
     Route: 048
  3. SILENOR [Suspect]
     Active Substance: DOXEPIN HYDROCHLORIDE
     Indication: INSOMNIA
     Dosage: 6 MG, AT BEDTIME
     Route: 048
     Dates: start: 20150818, end: 201508
  4. LITHIUM. [Concomitant]
     Active Substance: LITHIUM
     Indication: MAJOR DEPRESSION
     Dosage: 150 MG, DAILY
     Route: 048

REACTIONS (2)
  - Suicide attempt [Recovered/Resolved]
  - Overdose [Recovered/Resolved]

NARRATIVE: CASE EVENT DATE: 20160221
